FAERS Safety Report 5910160-9 (Version None)
Quarter: 2008Q4

REPORT INFORMATION
  Report Type: 
  Country: None (occurrence: None)
  Receive Date: 20081007
  Receipt Date: 20080204
  Transmission Date: 20090506
  Serious: No
  Sender: FDA-Public Use
  Company Number: US-ASTRAZENECA-2007UW22223

PATIENT
  Age: 56 Year
  Sex: Female

DRUGS (6)
  1. ARIMIDEX [Suspect]
     Indication: BREAST CANCER
     Route: 048
     Dates: start: 20070811, end: 20070901
  2. ARIMIDEX [Suspect]
     Route: 048
     Dates: start: 20071201
  3. BONIVA [Concomitant]
  4. HYZAAR [Concomitant]
  5. ATENOLOL [Concomitant]
     Route: 048
  6. SIMVASTATIN [Concomitant]

REACTIONS (5)
  - DRY SKIN [None]
  - HOT FLUSH [None]
  - MUSCLE SPASMS [None]
  - PRURITUS [None]
  - VAGINAL HAEMORRHAGE [None]
